FAERS Safety Report 7020096-0 (Version None)
Quarter: 2010Q3

REPORT INFORMATION
  Report Type: 
  Country: None (occurrence: None)
  Receive Date: 20100929
  Receipt Date: 20100920
  Transmission Date: 20110219
  Serious: Yes (Hospitalization)
  Sender: FDA-Public Use
  Company Number: ZA-ASTRAZENECA-2010SE44823

PATIENT
  Age: 22 Year
  Sex: Female

DRUGS (4)
  1. NEXIUM [Suspect]
     Indication: OESOPHAGITIS
     Route: 048
     Dates: start: 20100830, end: 20100920
  2. MULTI-VITAMIN [Concomitant]
     Indication: SUPPLEMENTATION THERAPY
  3. RESCUE [Concomitant]
     Indication: STRESS
  4. YASMIN [Concomitant]
     Indication: CONTRACEPTION

REACTIONS (4)
  - BODY TEMPERATURE INCREASED [None]
  - DERMATITIS [None]
  - HYPOTENSION [None]
  - PAIN [None]
